FAERS Safety Report 9891147 (Version 1)
Quarter: 2014Q1

REPORT INFORMATION
  Report Type: Spontaneous
  Country: IE (occurrence: DE)
  Receive Date: 20140212
  Receipt Date: 20140212
  Transmission Date: 20141002
  Serious: Yes (Death)
  Sender: FDA-Public Use
  Company Number: IE-PERRIGO-14DE001309

PATIENT
  Age: 61 Year
  Sex: Male

DRUGS (3)
  1. DOXYLAMINE SUCCINATE 25 MG 441 [Suspect]
     Indication: INTENTIONAL OVERDOSE
     Dosage: UNKNOWN, SINGLE
     Route: 048
  2. DOXYLAMINE SUCCINATE 25 MG 441 [Suspect]
     Indication: COMPLETED SUICIDE
  3. DIPHENHYDRAMINE [Suspect]
     Indication: INTENTIONAL OVERDOSE
     Dosage: UNKNOWN, SINGLE
     Route: 048

REACTIONS (1)
  - Poisoning [Fatal]
